FAERS Safety Report 7555907-3 (Version None)
Quarter: 2011Q2

REPORT INFORMATION
  Report Type: 
  Country: None (occurrence: None)
  Receive Date: 20110618
  Receipt Date: 20110128
  Transmission Date: 20111010
  Serious: Yes (Hospitalization, Other)
  Sender: FDA-Public Use
  Company Number: US-BAYER-201040967NA

PATIENT
  Age: 27 Year
  Sex: Female
  Weight: 104.31 kg

DRUGS (5)
  1. AMOXICILLIN [Concomitant]
     Dosage: UNK
     Dates: start: 20080314
  2. NYSTATIN / TRIAMCINOLONE [Concomitant]
     Dosage: UNK
     Dates: start: 20080416
  3. HYDROCODONE BITARTRATE AND ACETAMINOPHEN [Concomitant]
     Dosage: UNK
     Dates: start: 20080314
  4. TERCONAZOLE [Concomitant]
     Dosage: UNK
     Dates: start: 20090416
  5. YAZ [Suspect]
     Indication: PRODUCT USED FOR UNKNOWN INDICATION
     Route: 048
     Dates: start: 20080301, end: 20080401

REACTIONS (1)
  - PULMONARY EMBOLISM [None]
